FAERS Safety Report 24166108 (Version 1)
Quarter: 2024Q3

REPORT INFORMATION
  Report Type: Spontaneous
  Country: CN (occurrence: CN)
  Receive Date: 20240802
  Receipt Date: 20240802
  Transmission Date: 20241016
  Serious: Yes (Other)
  Sender: QILU PHARMACEUTICAL
  Company Number: CN-QILU PHARMACEUTICAL (HAINAN) CO.  LTD.-QLH-000174-2024

PATIENT
  Age: 64 Year
  Sex: Male
  Weight: 76 kg

DRUGS (8)
  1. OXALIPLATIN [Suspect]
     Active Substance: OXALIPLATIN
     Indication: Adenocarcinoma of colon
     Dosage: 250 MG
     Route: 042
     Dates: start: 20230315, end: 202303
  2. OXALIPLATIN [Suspect]
     Active Substance: OXALIPLATIN
     Dosage: 250 MG
     Route: 042
     Dates: start: 20230407, end: 202304
  3. OXALIPLATIN [Suspect]
     Active Substance: OXALIPLATIN
     Dosage: 250 MG
     Route: 042
     Dates: start: 20230508, end: 202305
  4. OXALIPLATIN [Suspect]
     Active Substance: OXALIPLATIN
     Dosage: 250 MG
     Route: 042
     Dates: start: 20230612, end: 202306
  5. CAPECITABINE [Suspect]
     Active Substance: CAPECITABINE
     Indication: Adenocarcinoma of colon
     Dosage: 2.0 G ORAL TWICE A DAY, DAYS 1-14
     Route: 048
     Dates: start: 20230315, end: 202303
  6. CAPECITABINE [Suspect]
     Active Substance: CAPECITABINE
     Dosage: 2.0 G ORAL TWICE A DAY, DAYS 1-14
     Route: 048
     Dates: start: 20230407, end: 202304
  7. CAPECITABINE [Suspect]
     Active Substance: CAPECITABINE
     Dosage: 2.0 G ORAL TWICE A DAY, DAYS 1-14
     Route: 048
     Dates: start: 20230508, end: 202305
  8. CAPECITABINE [Suspect]
     Active Substance: CAPECITABINE
     Dosage: 2.0 G ORAL TWICE A DAY, DAYS 1-14
     Route: 048
     Dates: start: 20230612, end: 202306

REACTIONS (2)
  - Deep vein thrombosis [Recovering/Resolving]
  - Neuropathy peripheral [Unknown]

NARRATIVE: CASE EVENT DATE: 20230403
